FAERS Safety Report 8202843-5 (Version None)
Quarter: 2012Q1

REPORT INFORMATION
  Report Type: 
  Country: None (occurrence: None)
  Receive Date: 20120312
  Receipt Date: 20120312
  Transmission Date: 20120608
  Serious: Yes (Hospitalization)
  Sender: FDA-Public Use
  Company Number: None

PATIENT
  Age: 37 Year
  Sex: Female
  Weight: 65.317 kg

DRUGS (2)
  1. SOLU-MEDROL [Suspect]
  2. SOLU-MEDRO [Concomitant]

REACTIONS (2)
  - DYSPNOEA [None]
  - TREMOR [None]
